FAERS Safety Report 9081499 (Version 1)
Quarter: 2013Q1

REPORT INFORMATION
  Report Type: Report from Study
  Country: US (occurrence: US)
  Receive Date: 20130130
  Receipt Date: 20130130
  Transmission Date: 20140127
  Serious: Yes (Hospitalization)
  Sender: FDA-Public Use
  Company Number: US-ABBOTT-12P-163-0955086-00

PATIENT
  Age: 54 None
  Sex: Female
  Weight: 50.85 kg

DRUGS (7)
  1. HUMIRA 40 MG/0.8 ML PEN [Suspect]
     Indication: CROHN^S DISEASE
     Dates: start: 201002
  2. AZATHIOPRINE [Concomitant]
     Indication: CROHN^S DISEASE
     Dates: end: 201012
  3. LEVOTHYROXINE [Concomitant]
     Indication: HYPOTHYROIDISM
  4. VITAMIN B 12 [Concomitant]
     Indication: VITAMIN SUPPLEMENTATION
     Dosage: MONTHLY
  5. PAXIL [Concomitant]
     Indication: PRODUCT USED FOR UNKNOWN INDICATION
  6. CALCIUM PLUS D [Concomitant]
     Indication: MINERAL SUPPLEMENTATION
  7. MULTIVITAMIN [Concomitant]
     Indication: VITAMIN SUPPLEMENTATION

REACTIONS (7)
  - Pneumonia [Recovered/Resolved]
  - Pneumonia [Recovered/Resolved]
  - Abdominal pain [Recovered/Resolved]
  - Crohn^s disease [Recovering/Resolving]
  - Diarrhoea [Not Recovered/Not Resolved]
  - Decreased appetite [Not Recovered/Not Resolved]
  - Weight decreased [Not Recovered/Not Resolved]
